FAERS Safety Report 8881317 (Version 3)
Quarter: 2013Q2

REPORT INFORMATION
  Report Type: Spontaneous
  Country: US (occurrence: None)
  Receive Date: 20120426
  Receipt Date: 20121031
  Transmission Date: 20140414
  Serious: Yes (Other)
  Sender: FDA-Public Use
  Company Number: PHEH2011US011857

PATIENT
  Age: 53 Year
  Sex: Female

DRUGS (3)
  1. GILENYA (FTY) CAPSULE, 0.5MG [Suspect]
     Indication: MULTIPLE SCLEROSIS
     Route: 048
     Dates: start: 201112
  2. DETROL (TOLTERODINE L-TARTRATE) [Concomitant]
  3. FAMPRIDINE (FAMPRIDINE) [Concomitant]

REACTIONS (10)
  - Joint swelling [None]
  - Oedema peripheral [None]
  - Panic attack [None]
  - Middle insomnia [None]
  - Orthostatic hypotension [None]
  - Paraesthesia [None]
  - Dizziness [None]
  - Anxiety [None]
  - Vertigo positional [None]
  - Palpitations [None]
